FAERS Safety Report 4748712-4 (Version None)
Quarter: 2005Q3

REPORT INFORMATION
  Report Type: 
  Country: None (occurrence: None)
  Receive Date: 20050819
  Receipt Date: 20050808
  Transmission Date: 20060218
  Serious: Yes (Death, Hospitalization)
  Sender: FDA-Public Use
  Company Number: US-BRISTOL-MYERS SQUIBB COMPANY-13065792

PATIENT
  Sex: Male

DRUGS (10)
  1. COUMADIN [Suspect]
     Indication: CHEST PAIN
     Dates: start: 20050201, end: 20050101
  2. ASPIRIN [Concomitant]
  3. IMDUR [Concomitant]
  4. NPH INSULIN [Concomitant]
     Dosage: 75/25
  5. KLONOPIN [Concomitant]
  6. LANTUS [Concomitant]
  7. LASIX [Concomitant]
  8. LOPID [Concomitant]
  9. POTASSIUM CHLORIDE [Concomitant]
  10. XANAX [Concomitant]

REACTIONS (5)
  - CARDIAC FAILURE CONGESTIVE [None]
  - CHEST PAIN [None]
  - DEATH [None]
  - DRUG HYPERSENSITIVITY [None]
  - ERYTHEMA [None]
